FAERS Safety Report 8998688 (Version 1)
Quarter: 2013Q1

REPORT INFORMATION
  Report Type: Spontaneous
  Country: FR (occurrence: FR)
  Receive Date: 20130103
  Receipt Date: 20130103
  Transmission Date: 20140127
  Serious: Yes (Other)
  Sender: FDA-Public Use
  Company Number: FR-009507513-1212FRA009576

PATIENT
  Age: 82 Year
  Sex: Female

DRUGS (15)
  1. INVANZ [Suspect]
     Indication: URINARY TRACT INFECTION
     Dosage: 1 G, QD
     Dates: start: 20121121, end: 20121126
  2. ISOPTINE [Concomitant]
     Indication: HYPERTENSION
     Dosage: 240 MG, UNK
     Route: 048
     Dates: start: 201208, end: 20121127
  3. LOXEN [Concomitant]
     Indication: HYPERTENSION
     Dosage: 50 MG, QD
     Route: 048
     Dates: end: 20121126
  4. ESIDREX [Concomitant]
     Indication: HYPERTENSION
     Dosage: 25 MG, QD
     Route: 048
     Dates: end: 20121126
  5. PREDNISONE [Concomitant]
     Dosage: UNK
     Dates: start: 20121107
  6. PLAVIX [Concomitant]
     Dosage: UNK
     Dates: start: 20121108
  7. JANUVIA [Concomitant]
     Dosage: UNK
     Dates: end: 20121130
  8. CALCIDOSE VITAMINE D [Concomitant]
  9. FORLAX [Concomitant]
  10. LASILIX [Concomitant]
     Dosage: UNK
     Dates: start: 20121025
  11. INEXIUM [Concomitant]
     Dosage: UNK
     Dates: start: 20121025
  12. LOVENOX [Concomitant]
  13. GENTALLINE [Concomitant]
     Indication: URINARY TRACT INFECTION
     Dosage: UNK
     Dates: start: 20121121
  14. SERESTA [Concomitant]
     Indication: AGITATION
  15. SERESTA [Concomitant]
     Indication: PERSECUTORY DELUSION

REACTIONS (1)
  - Orthostatic hypotension [Unknown]
